FAERS Safety Report 19397445 (Version 3)
Quarter: 2021Q3

REPORT INFORMATION
  Report Type: Report from Study
  Country: TW (occurrence: TW)
  Receive Date: 20210609
  Receipt Date: 20210804
  Transmission Date: 20211014
  Serious: Yes (Hospitalization)
  Sender: FDA-Public Use
  Company Number: TW-ROCHE-2032331

PATIENT
  Age: 44 Year
  Sex: Female
  Weight: 47 kg

DRUGS (18)
  1. HYDROCORTISONE. [Concomitant]
     Active Substance: HYDROCORTISONE
     Indication: RASH
     Route: 042
     Dates: start: 20171124, end: 20171124
  2. METHYLPREDNISOLONE. [Concomitant]
     Active Substance: METHYLPREDNISOLONE
     Indication: RASH
     Route: 042
     Dates: start: 20171124, end: 20171125
  3. NAB?PACLITAXEL [Suspect]
     Active Substance: PACLITAXEL
     Indication: TRIPLE NEGATIVE BREAST CANCER
     Dosage: DATE OF MOST RECENT DOSE (180 MG) PRIOR TO AE/SAE ONSET: 15/NOV/2017, START TIME: 11:37 HR. AND ENDE
     Route: 042
     Dates: start: 20171115
  4. METHYLPREDNISOLONE. [Concomitant]
     Active Substance: METHYLPREDNISOLONE
     Route: 042
     Dates: start: 20171029, end: 20171213
  5. METHYLPREDNISOLONE. [Concomitant]
     Active Substance: METHYLPREDNISOLONE
     Dosage: INHALANT
     Dates: start: 20171201, end: 20171202
  6. CLOBESOL [Concomitant]
     Active Substance: CLOBETASOL PROPIONATE
     Indication: DERMATITIS CONTACT
     Route: 061
     Dates: start: 20171114, end: 20171124
  7. METISONE [Concomitant]
     Indication: DERMATITIS CONTACT
     Route: 048
     Dates: start: 20171114, end: 20171128
  8. TIAN WANG BU XIN DAN [Concomitant]
     Indication: ECZEMA
     Dates: start: 20171102, end: 20171108
  9. VISTARIL [Concomitant]
     Active Substance: HYDROXYZINE PAMOATE
     Indication: DERMATITIS CONTACT
     Dosage: FREQUENCY: OTHER
     Route: 048
     Dates: start: 20171110, end: 20171121
  10. XYZAL [Concomitant]
     Active Substance: LEVOCETIRIZINE DIHYDROCHLORIDE
     Indication: DERMATITIS CONTACT
     Route: 048
     Dates: start: 20171110
  11. EURODIN (TAIWAN) [Concomitant]
     Indication: INSOMNIA
     Dates: start: 20171101, end: 20171130
  12. ATEZOLIZUMAB. [Suspect]
     Active Substance: ATEZOLIZUMAB
     Indication: TRIPLE NEGATIVE BREAST CANCER
     Dosage: DATE OF MOST RECENT DOSE PRIOR TO SAE ONSET: 15/NOV/2017, START TIME: 10:30 HR
     Route: 042
     Dates: start: 20171115
  13. RINDERON V [Concomitant]
     Active Substance: BETAMETHASONE VALERATE
     Indication: DERMATITIS CONTACT
     Route: 061
     Dates: start: 20171010, end: 20171117
  14. XANAX [Concomitant]
     Active Substance: ALPRAZOLAM
     Indication: ANXIETY
     Dates: start: 20171023, end: 20171229
  15. DOCETAXEL. [Concomitant]
     Active Substance: DOCETAXEL
     Indication: NEOPLASM MALIGNANT
     Dates: start: 20171209, end: 20171230
  16. VOREN?K [Concomitant]
     Indication: BREAST PAIN
     Dates: start: 20171018, end: 20171028
  17. CHLORPHENIRAMINE. [Concomitant]
     Active Substance: CHLORPHENIRAMINE
     Indication: RASH
     Route: 042
     Dates: start: 20171124, end: 20171125
  18. SUAN ZAO REN [Concomitant]
     Indication: ECZEMA
     Dates: start: 20171102, end: 20171108

REACTIONS (1)
  - Dermatomyositis [Not Recovered/Not Resolved]

NARRATIVE: CASE EVENT DATE: 20171124
